FAERS Safety Report 25533894 (Version 1)
Quarter: 2025Q3

REPORT INFORMATION
  Report Type: Spontaneous
  Country: US (occurrence: None)
  Receive Date: 20250708
  Receipt Date: 20250708
  Transmission Date: 20251020
  Serious: Yes (Hospitalization)
  Sender: FDA-CTU
  Company Number: None

PATIENT
  Age: 41 Year
  Sex: Male
  Weight: 131 kg

DRUGS (4)
  1. TAGRISSO [Suspect]
     Active Substance: OSIMERTINIB
     Indication: Lung neoplasm malignant
     Dosage: FREQUENCY : DAILY;?
     Route: 048
     Dates: start: 20250303
  2. BACTRIM DS [Concomitant]
     Active Substance: SULFAMETHOXAZOLE\TRIMETHOPRIM
     Dates: start: 20230301
  3. OXYCODONE [Concomitant]
     Active Substance: OXYCODONE
     Dates: start: 20230301
  4. Doc-Q-lace 100mg [Concomitant]
     Dates: start: 20230301

REACTIONS (2)
  - Migraine [None]
  - Seizure [None]

NARRATIVE: CASE EVENT DATE: 20250704
